FAERS Safety Report 9025838 (Version 2)
Quarter: 2013Q1

REPORT INFORMATION
  Report Type: Report from Study
  Country: RO (occurrence: RO)
  Receive Date: 20130123
  Receipt Date: 20130125
  Transmission Date: 20140127
  Serious: Yes (Life-Threatening, Hospitalization)
  Sender: FDA-Public Use
  Company Number: RO-009507513-1301ROM010332

PATIENT
  Age: 43 Year
  Sex: Female

DRUGS (3)
  1. RIBAVIRIN [Suspect]
     Indication: CHRONIC HEPATITIS C
     Dosage: 1 DF, QD
     Route: 048
     Dates: start: 20120101, end: 20130112
  2. BOCEPREVIR [Suspect]
     Indication: CHRONIC HEPATITIS C
     Dosage: 1 DF, QD
     Route: 048
     Dates: start: 20121130, end: 20130112
  3. PEGINTERFERON ALFA-2A [Suspect]
     Indication: CHRONIC HEPATITIS C
     Dosage: 1 DF, QW
     Route: 058
     Dates: start: 20121101, end: 20130111

REACTIONS (1)
  - Neutropenia [Unknown]
